FAERS Safety Report 11115037 (Version 1)
Quarter: 2015Q2

REPORT INFORMATION
  Report Type: Spontaneous
  Country: US (occurrence: US)
  Receive Date: 20150515
  Receipt Date: 20150515
  Transmission Date: 20150821
  Serious: Yes (Other)
  Sender: FDA-Public Use
  Company Number: US-BAYER-2015-213296

PATIENT
  Age: 59 Year
  Sex: Male

DRUGS (1)
  1. MAGNESIUM HYDROXIDE. [Suspect]
     Active Substance: MAGNESIUM HYDROXIDE
     Indication: CONSTIPATION
     Dosage: UNK

REACTIONS (9)
  - Headache [None]
  - Confusional state [None]
  - Atrioventricular block first degree [None]
  - Photopsia [None]
  - Gait disturbance [None]
  - Hypermagnesaemia [None]
  - Movement disorder [None]
  - Toxicity to various agents [None]
  - Disorientation [None]
